FAERS Safety Report 17774300 (Version 1)
Quarter: 2020Q2

REPORT INFORMATION
  Report Type: Spontaneous
  Country: US (occurrence: US)
  Receive Date: 20200512
  Receipt Date: 20200512
  Transmission Date: 20200714
  Serious: Yes (Hospitalization)
  Sender: FDA-Public Use
  Company Number: None

PATIENT
  Sex: Male

DRUGS (19)
  1. AMLODIPINE [Concomitant]
     Active Substance: AMLODIPINE BESYLATE
  2. DAPSONE. [Concomitant]
     Active Substance: DAPSONE
  3. HUMALOG KWIK [Concomitant]
  4. QUETIAPINE. [Concomitant]
     Active Substance: QUETIAPINE
  5. DICLOXACILL [Concomitant]
  6. LEVEMIR [Concomitant]
     Active Substance: INSULIN DETEMIR
  7. LOSARTAN POT [Concomitant]
     Active Substance: LOSARTAN POTASSIUM
  8. MYCOPHENOLATE 250MG CAP (205) [Suspect]
     Active Substance: MYCOPHENOLATE MOFETIL
     Indication: HEART TRANSPLANT
     Route: 048
     Dates: start: 20190911
  9. ALLOPURINOL. [Concomitant]
     Active Substance: ALLOPURINOL
  10. DICLOFENAC [Concomitant]
     Active Substance: DICLOFENAC
  11. NP THYROID [Concomitant]
     Active Substance: LEVOTHYROXINE\LIOTHYRONINE
  12. PREDNISONE. [Concomitant]
     Active Substance: PREDNISONE
  13. ONDANSETRON [Concomitant]
     Active Substance: ONDANSETRON
  14. TACROLIMUS. [Concomitant]
     Active Substance: TACROLIMUS
  15. ASPIRIN. [Concomitant]
     Active Substance: ASPIRIN
  16. PANTOPRAZOLE [Concomitant]
     Active Substance: PANTOPRAZOLE
  17. MYCOPHENOLATE 250MG CAP (35) [Suspect]
     Active Substance: MYCOPHENOLATE MOFETIL
     Indication: HEART TRANSPLANT
     Route: 048
     Dates: start: 20190911
  18. ATORVASTATIN [Concomitant]
     Active Substance: ATORVASTATIN
  19. TESTOSTERONE GEL [Concomitant]
     Active Substance: TESTOSTERONE

REACTIONS (1)
  - Sepsis [None]
